FAERS Safety Report 7438032-1 (Version None)
Quarter: 2011Q2

REPORT INFORMATION
  Report Type: 
  Country: None (occurrence: None)
  Receive Date: 20110426
  Receipt Date: 20110419
  Transmission Date: 20111010
  Serious: Yes (Hospitalization)
  Sender: FDA-Public Use
  Company Number: PHHY2011US33855

PATIENT
  Sex: Female

DRUGS (1)
  1. TOBI [Suspect]
     Dosage: 300 MG, BID
     Dates: start: 20100922, end: 20101019

REACTIONS (1)
  - PNEUMONIA [None]
